FAERS Safety Report 16833210 (Version 1)
Quarter: 2019Q4

REPORT INFORMATION
  Report Type: Spontaneous
  Country: US (occurrence: US)
  Receive Date: 20190920
  Receipt Date: 20190920
  Transmission Date: 20200122
  Serious: No
  Sender: FDA-Public Use
  Company Number: None

PATIENT
  Age: 75 Year
  Sex: Female
  Weight: 94.5 kg

DRUGS (13)
  1. ORGANABUS SILVER ORGANIC CBD VAPOR LIQUID [Suspect]
     Active Substance: CANNABIDIOL\HERBALS
     Indication: STENOSIS
     Dosage: ?          QUANTITY:10 DROP(S);OTHER ROUTE:VAPE?
  2. MYRBETRIQUE [Concomitant]
  3. ORGANABUS SILVER ORGANIC CBD VAPOR LIQUID [Suspect]
     Active Substance: CANNABIDIOL\HERBALS
     Indication: NEUROPATHY PERIPHERAL
     Dosage: ?          QUANTITY:10 DROP(S);OTHER ROUTE:VAPE?
  4. VITAMIN D [Concomitant]
     Active Substance: VITAMIN D NOS
  5. ORGANABUS SILVER ORGANIC CBD VAPOR LIQUID [Suspect]
     Active Substance: CANNABIDIOL\HERBALS
     Indication: PAIN
     Dosage: ?          QUANTITY:10 DROP(S);OTHER ROUTE:VAPE?
  6. CPAP [Concomitant]
     Active Substance: DEVICE
  7. FISH OIL [Concomitant]
     Active Substance: FISH OIL
  8. ORGANABUS SILVER ORGANIC CBD VAPOR LIQUID [Suspect]
     Active Substance: CANNABIDIOL\HERBALS
     Indication: INSOMNIA
     Dosage: ?          QUANTITY:10 DROP(S);OTHER ROUTE:VAPE?
  9. LEVOTHYROXINE. [Concomitant]
     Active Substance: LEVOTHYROXINE
  10. BIOIDENTICAL ESTROGEN [Concomitant]
  11. NEUROPATHY HERBS [Concomitant]
  12. PROTONIX [Concomitant]
     Active Substance: PANTOPRAZOLE SODIUM
  13. GLUCOASAMINE/CONDROITIN [Concomitant]

REACTIONS (4)
  - Ocular hyperaemia [None]
  - Reaction to excipient [None]
  - Dry eye [None]
  - Vision blurred [None]

NARRATIVE: CASE EVENT DATE: 20090930
